FAERS Safety Report 21333863 (Version 2)
Quarter: 2022Q3

REPORT INFORMATION
  Report Type: Spontaneous
  Country: JP (occurrence: JP)
  Receive Date: 20220914
  Receipt Date: 20220928
  Transmission Date: 20221027
  Serious: Yes (Other)
  Sender: FDA-Public Use
  Company Number: JP-BAXTER-2022BAX019379

PATIENT
  Age: 9 Decade
  Sex: Female

DRUGS (7)
  1. SUPRANE [Suspect]
     Active Substance: DESFLURANE
     Indication: Anaesthesia
  2. FENTANYL [Concomitant]
     Active Substance: FENTANYL
     Route: 065
  3. PROPOFOL [Concomitant]
     Active Substance: PROPOFOL
     Route: 065
  4. ROCURONIUM [Concomitant]
     Active Substance: ROCURONIUM BROMIDE
     Route: 065
  5. OXYGEN [Concomitant]
     Active Substance: OXYGEN
     Route: 065
  6. REMIFENTANIL [Concomitant]
     Active Substance: REMIFENTANIL
     Route: 065
  7. SUGAMMADEX [Concomitant]
     Active Substance: SUGAMMADEX
     Route: 065

REACTIONS (2)
  - Anaphylactic shock [Unknown]
  - Bronchospasm [Unknown]
